FAERS Safety Report 5593423-9 (Version None)
Quarter: 2008Q1

REPORT INFORMATION
  Report Type: 
  Country: None (occurrence: None)
  Receive Date: 20080116
  Receipt Date: 20080114
  Transmission Date: 20080703
  Serious: Yes (Other)
  Sender: FDA-Public Use
  Company Number: JP-BRISTOL-MYERS SQUIBB COMPANY-13901863

PATIENT
  Sex: Female

DRUGS (2)
  1. TAXOL [Suspect]
     Route: 041
  2. PARAPLATIN [Suspect]
     Route: 041

REACTIONS (2)
  - DERMATOMYOSITIS [None]
  - RHABDOMYOLYSIS [None]
